FAERS Safety Report 18400937 (Version 1)
Quarter: 2020Q4

REPORT INFORMATION
  Report Type: Spontaneous
  Country: IT (occurrence: IT)
  Receive Date: 20201019
  Receipt Date: 20201019
  Transmission Date: 20210114
  Serious: Yes (Hospitalization)
  Sender: FDA-Public Use
  Company Number: IT-BAUSCH-BL-2020-029363

PATIENT
  Age: 58 Year
  Sex: Female

DRUGS (7)
  1. DEXAMETHASONE. [Suspect]
     Active Substance: DEXAMETHASONE
     Indication: CANCER PAIN
     Route: 042
  2. DULOXETINA [Suspect]
     Active Substance: DULOXETINE
     Indication: CANCER PAIN
     Route: 065
  3. MORFINA [Suspect]
     Active Substance: MORPHINE HYDROCHLORIDE
     Indication: CANCER PAIN
     Dosage: AS REQUIRED
     Route: 042
  4. MORFINA [Suspect]
     Active Substance: MORPHINE HYDROCHLORIDE
     Indication: BREAKTHROUGH PAIN
     Route: 065
  5. PARACETAMOLO [Suspect]
     Active Substance: ACETAMINOPHEN
     Indication: CANCER PAIN
     Dosage: AS REQUIRED
     Route: 042
  6. FENTANYL. [Suspect]
     Active Substance: FENTANYL
     Indication: CANCER PAIN
     Dosage: 288 MICROGRAMS DAILY
     Route: 062
  7. FENTANYL. [Suspect]
     Active Substance: FENTANYL
     Indication: BREAKTHROUGH PAIN
     Dosage: 600 MICROGRAMS DAILY
     Route: 062

REACTIONS (3)
  - Nausea [Unknown]
  - Somnolence [Unknown]
  - Vomiting [Unknown]
